FAERS Safety Report 4811415-1 (Version None)
Quarter: 2005Q4

REPORT INFORMATION
  Report Type: 
  Country: None (occurrence: None)
  Receive Date: 20051026
  Receipt Date: 20051026
  Transmission Date: 20060501
  Serious: Yes (Hospitalization)
  Sender: FDA-Public Use
  Company Number: None

PATIENT
  Sex: Male
  Weight: 66 kg

DRUGS (3)
  1. CARBOPLATIN [Suspect]
     Indication: NON-SMALL CELL LUNG CANCER
     Dosage: SEE IMAGE
     Dates: start: 20050516, end: 20050627
  2. PACLITAXEL [Suspect]
     Dosage: SEE IMAGE
     Dates: start: 20050516, end: 20050627
  3. RADIATION THERAPY [Suspect]
     Dosage: SEE IMAGE
     Dates: start: 20050516

REACTIONS (1)
  - ACUTE RESPIRATORY DISTRESS SYNDROME [None]
